FAERS Safety Report 8438246-8 (Version None)
Quarter: 2012Q2

REPORT INFORMATION
  Report Type: 
  Country: None (occurrence: None)
  Receive Date: 20120614
  Receipt Date: 20120606
  Transmission Date: 20120825
  Serious: Yes (Hospitalization, Other)
  Sender: FDA-Public Use
  Company Number: PT-BAXTER-2012BAX006719

PATIENT
  Sex: Female
  Weight: 78 kg

DRUGS (10)
  1. ACETYLSALICYLIC ACID SRT [Concomitant]
     Route: 048
  2. ARANESP [Concomitant]
     Route: 058
  3. CALCIUM CARBONATE [Concomitant]
     Route: 048
  4. ALLOPURINOL [Concomitant]
     Route: 048
  5. PHYSIONEAL 40 GLUCOSE 1,36% P/V / 13,6 MG/ML [Suspect]
     Route: 033
     Dates: start: 20090428, end: 20120521
  6. CALCITRIOL [Concomitant]
     Route: 048
  7. RENVELA [Concomitant]
     Route: 048
  8. EXTRANEAL [Suspect]
     Route: 033
     Dates: start: 20090428, end: 20120521
  9. PHYSIONEAL 40 GLUCOSE 2,27% P/V / 22,7 MG/ML [Suspect]
     Route: 033
     Dates: start: 20090428, end: 20120521
  10. CINACALCET HYDROCHLORIDE [Concomitant]
     Route: 048

REACTIONS (3)
  - PERITONITIS BACTERIAL [None]
  - ABDOMINAL PAIN [None]
  - THROMBOSIS MESENTERIC VESSEL [None]
